FAERS Safety Report 6493918-X (Version None)
Quarter: 2009Q4

REPORT INFORMATION
  Report Type: 
  Country: None (occurrence: None)
  Receive Date: 20091214
  Receipt Date: 20081124
  Transmission Date: 20100525
  Serious: No
  Sender: FDA-Public Use
  Company Number: US-BRISTOL-MYERS SQUIBB COMPANY-14418016

PATIENT
  Age: 15 Year
  Sex: Male
  Weight: 59 kg

DRUGS (7)
  1. ABILIFY [Suspect]
     Indication: ATTENTION DEFICIT/HYPERACTIVITY DISORDER
     Dosage: DOSE INCREASED TO 20 MG AND 30 MG.INTERRUPTED FOR 1 MONTH ON 13JUN07.RESTARTED AND DISCONTINUED.
     Dates: start: 20050101, end: 20080201
  2. ABILIFY [Suspect]
     Indication: OPPOSITIONAL DEFIANT DISORDER
     Dosage: DOSE INCREASED TO 20 MG AND 30 MG.INTERRUPTED FOR 1 MONTH ON 13JUN07.RESTARTED AND DISCONTINUED.
     Dates: start: 20050101, end: 20080201
  3. ABILIFY [Suspect]
     Indication: ANGER
     Dosage: DOSE INCREASED TO 20 MG AND 30 MG.INTERRUPTED FOR 1 MONTH ON 13JUN07.RESTARTED AND DISCONTINUED.
     Dates: start: 20050101, end: 20080201
  4. RISPERDAL [Concomitant]
  5. ADDERALL 10 [Concomitant]
  6. CONCERTA [Concomitant]
  7. FOCALIN [Concomitant]

REACTIONS (11)
  - ABNORMAL BEHAVIOUR [None]
  - AGGRESSION [None]
  - AGITATION [None]
  - ANGER [None]
  - DRUG WITHDRAWAL SYNDROME [None]
  - INSOMNIA [None]
  - IRRITABILITY [None]
  - MANIA [None]
  - MOOD ALTERED [None]
  - RESTLESSNESS [None]
  - SUICIDAL IDEATION [None]
